FAERS Safety Report 24072926 (Version 3)
Quarter: 2024Q3

REPORT INFORMATION
  Report Type: Report from Study
  Country: US (occurrence: US)
  Receive Date: 20240710
  Receipt Date: 20240919
  Transmission Date: 20241017
  Serious: Yes (Hospitalization)
  Sender: ROCHE
  Company Number: US-ROCHE-10000015964

PATIENT
  Age: 82 Year
  Sex: Male

DRUGS (1)
  1. ERIVEDGE [Suspect]
     Active Substance: VISMODEGIB
     Indication: Basal cell carcinoma
     Route: 048

REACTIONS (13)
  - Joint range of motion decreased [Unknown]
  - Fall [Unknown]
  - Haemophilia [Unknown]
  - Thrombosis [Unknown]
  - Joint swelling [Unknown]
  - Asthenia [Unknown]
  - Myalgia [Unknown]
  - Muscular weakness [Unknown]
  - Decreased appetite [Unknown]
  - Gait disturbance [Unknown]
  - Memory impairment [Unknown]
  - Arthralgia [Unknown]
  - Arthropathy [Unknown]
